FAERS Safety Report 21315216 (Version 1)
Quarter: 2022Q3

REPORT INFORMATION
  Report Type: Other
  Country: IN (occurrence: None)
  Receive Date: 20220909
  Receipt Date: 20220909
  Transmission Date: 20221027
  Serious: Yes (Hospitalization)
  Sender: FDA-Public Use
  Company Number: IN-ROCHE-3174825

PATIENT
  Age: 37 Year
  Sex: Female

DRUGS (3)
  1. TOCILIZUMAB [Suspect]
     Active Substance: TOCILIZUMAB
     Indication: Still^s disease
     Route: 042
  2. METHOTREXATE [Concomitant]
     Active Substance: METHOTREXATE
     Indication: Still^s disease
  3. METHOTREXATE [Concomitant]
     Active Substance: METHOTREXATE

REACTIONS (7)
  - Sepsis [Recovering/Resolving]
  - Shock [Recovering/Resolving]
  - Pyelonephritis [Recovering/Resolving]
  - Oral candidiasis [Recovering/Resolving]
  - Bronchitis [Recovering/Resolving]
  - Klebsiella infection [Recovering/Resolving]
  - Off label use [Unknown]
